FAERS Safety Report 9734746 (Version 3)
Quarter: 2014Q2

REPORT INFORMATION
  Report Type: Spontaneous
  Country: DE (occurrence: DE)
  Receive Date: 20131206
  Receipt Date: 20140421
  Transmission Date: 20141212
  Serious: Yes (Life-Threatening, Hospitalization, Other)
  Sender: FDA-Public Use
  Company Number: DE-JNJFOC-20131201639

PATIENT
  Sex: Female
  Weight: 79 kg

DRUGS (2)
  1. XARELTO [Suspect]
     Indication: ATRIAL FIBRILLATION
     Route: 048
     Dates: end: 201311
  2. XARELTO [Suspect]
     Indication: CEREBROVASCULAR ACCIDENT PROPHYLAXIS
     Route: 048
     Dates: end: 201311

REACTIONS (13)
  - Coma [Unknown]
  - Haemorrhage [Recovered/Resolved]
  - Haemarthrosis [Recovered/Resolved]
  - Thoracic haemorrhage [Recovered/Resolved]
  - Gastrointestinal haemorrhage [Recovered/Resolved]
  - Retroperitoneal haematoma [Unknown]
  - Haemorrhage [Unknown]
  - Thrombocytopenia [Unknown]
  - Platelet disorder [Unknown]
  - Coagulopathy [Unknown]
  - Coagulopathy [Unknown]
  - Factor XIII deficiency [Unknown]
  - Intestinal ischaemia [Unknown]
